FAERS Safety Report 6102269-4 (Version None)
Quarter: 2009Q1

REPORT INFORMATION
  Report Type: 
  Country: None (occurrence: None)
  Receive Date: 20090304
  Receipt Date: 20090223
  Transmission Date: 20090719
  Serious: Yes (Other)
  Sender: FDA-Public Use
  Company Number: US-PFIZER INC-2009175178

PATIENT
  Age: 75 Year
  Sex: Female
  Weight: 102.49 kg

DRUGS (9)
  1. LYRICA [Suspect]
     Indication: FIBROMYALGIA
     Dates: start: 20090201, end: 20090201
  2. CELEXA [Concomitant]
     Dosage: UNK
  3. XANAX [Concomitant]
     Dosage: UNK
  4. PRILOSEC [Concomitant]
     Dosage: UNK
  5. ESTROPIPATE [Concomitant]
     Dosage: UNK
  6. SIMVASTATIN [Concomitant]
     Dosage: UNK
  7. TYLENOL [Concomitant]
     Dosage: UNK
  8. LORTAB [Concomitant]
     Dosage: UNK
  9. METAMUCIL-2 [Concomitant]
     Dosage: UNK

REACTIONS (3)
  - ORAL DISORDER [None]
  - PHARYNGEAL DISORDER [None]
  - TONGUE DISORDER [None]
